FAERS Safety Report 20494778 (Version 1)
Quarter: 2022Q1

REPORT INFORMATION
  Report Type: Spontaneous
  Country: IL (occurrence: IL)
  Receive Date: 20220221
  Receipt Date: 20220221
  Transmission Date: 20220423
  Serious: Yes (Hospitalization)
  Sender: FDA-Public Use
  Company Number: IL-STRIDES ARCOLAB LIMITED-2022SP001538

PATIENT
  Sex: Female

DRUGS (11)
  1. MINOCYCLINE [Suspect]
     Active Substance: MINOCYCLINE HYDROCHLORIDE
     Indication: Mycobacterium abscessus infection
     Dosage: UNK
     Route: 048
     Dates: start: 2009
  2. CLARITHROMYCIN [Suspect]
     Active Substance: CLARITHROMYCIN
     Indication: Mycobacterium abscessus infection
     Dosage: UNK
     Route: 048
     Dates: start: 2009
  3. MEROPENEM [Suspect]
     Active Substance: MEROPENEM
     Indication: Mycobacterium abscessus infection
     Dosage: UNK
     Route: 042
     Dates: start: 2009
  4. AMIKACIN [Suspect]
     Active Substance: AMIKACIN
     Indication: Mycobacterium abscessus infection
     Dosage: UNK
     Route: 042
     Dates: start: 2009
  5. AMIKACIN [Suspect]
     Active Substance: AMIKACIN
     Dosage: UNK (INHALED)
     Dates: start: 2009
  6. CEFOXITIN [Suspect]
     Active Substance: CEFOXITIN SODIUM
     Indication: Mycobacterium abscessus infection
     Dosage: UNK
     Route: 042
     Dates: start: 2009
  7. AZITHROMYCIN [Suspect]
     Active Substance: AZITHROMYCIN
     Indication: Mycobacterium abscessus infection
     Dosage: UNK
     Route: 048
     Dates: start: 2009
  8. CIPROFLOXACIN [Suspect]
     Active Substance: CIPROFLOXACIN
     Indication: Mycobacterium abscessus infection
     Dosage: UNK
     Route: 048
     Dates: start: 2009
  9. LINEZOLID [Suspect]
     Active Substance: LINEZOLID
     Indication: Mycobacterium abscessus infection
     Dosage: UNK
     Route: 048
     Dates: start: 2009
  10. CLOFAZIMINE [Suspect]
     Active Substance: CLOFAZIMINE
     Indication: Mycobacterium abscessus infection
     Dosage: UNK
     Route: 048
     Dates: start: 2009
  11. MOXIFLOXACIN [Suspect]
     Active Substance: MOXIFLOXACIN
     Indication: Mycobacterium abscessus infection
     Dosage: UNK
     Route: 048
     Dates: start: 2009

REACTIONS (2)
  - Henoch-Schonlein purpura [Unknown]
  - Drug ineffective [Unknown]
